FAERS Safety Report 4892431-0 (Version None)
Quarter: 2006Q1

REPORT INFORMATION
  Report Type: 
  Country: None (occurrence: None)
  Receive Date: 20060126
  Receipt Date: 20060120
  Transmission Date: 20060701
  Serious: Yes (Other)
  Sender: FDA-Public Use
  Company Number: PHEH2006US01199

PATIENT
  Age: 36 Year
  Sex: Male
  Weight: 117.91 kg

DRUGS (3)
  1. GEODON [Concomitant]
  2. CLOZARIL [Suspect]
     Dosage: 900 MG, QD
  3. CLOZARIL [Suspect]
     Dosage: 300 MG, QD

REACTIONS (5)
  - CARDIAC DISORDER [None]
  - CARDIAC STRESS TEST ABNORMAL [None]
  - DRUG WITHDRAWAL SYNDROME [None]
  - SCHIZOPHRENIA [None]
  - WEIGHT INCREASED [None]
